FAERS Safety Report 8321862-1 (Version None)
Quarter: 2012Q2

REPORT INFORMATION
  Report Type: 
  Country: None (occurrence: None)
  Receive Date: 20120430
  Receipt Date: 20120413
  Transmission Date: 20120825
  Serious: Yes (Other)
  Sender: FDA-Public Use
  Company Number: JP-GLAXOSMITHKLINE-B0796379A

PATIENT
  Sex: Female

DRUGS (7)
  1. LAMICTAL [Suspect]
     Indication: BIPOLAR I DISORDER
     Dosage: 25MG PER DAY
     Route: 048
     Dates: start: 20120313, end: 20120326
  2. LITHIUM CARBONATE [Concomitant]
     Route: 048
     Dates: end: 20120418
  3. LITHIUM CARBONATE [Concomitant]
     Dosage: 600MG PER DAY
     Route: 048
     Dates: start: 20120419
  4. LAMICTAL [Suspect]
     Dosage: 50MG PER DAY
     Route: 048
     Dates: start: 20120327, end: 20120328
  5. ZYPREXA [Concomitant]
     Dosage: 5MG PER DAY
     Route: 048
     Dates: start: 20120420
  6. LAMICTAL [Suspect]
     Dosage: 25MG PER DAY
     Route: 048
     Dates: start: 20120329, end: 20120409
  7. ZYPREXA [Concomitant]
     Dosage: 10MG PER DAY
     Route: 048
     Dates: start: 20120329, end: 20120419

REACTIONS (4)
  - AMIMIA [None]
  - ANGER [None]
  - MANIA [None]
  - AGGRESSION [None]
